FAERS Safety Report 7005234-8 (Version None)
Quarter: 2010Q3

REPORT INFORMATION
  Report Type: 
  Country: None (occurrence: None)
  Receive Date: 20100920
  Receipt Date: 20100920
  Transmission Date: 20110219
  Serious: No
  Sender: FDA-Public Use
  Company Number: None

PATIENT
  Age: 37 Year
  Sex: Male
  Weight: 58.9676 kg

DRUGS (2)
  1. FENTANYL [Suspect]
     Indication: INJURY
     Dosage: 25MCG EVERY 72 HOURS TOP
     Route: 061
     Dates: start: 20100802, end: 20100901
  2. FENTANYL [Suspect]
     Indication: PAIN
     Dosage: 25MCG EVERY 72 HOURS TOP
     Route: 061
     Dates: start: 20100802, end: 20100901

REACTIONS (6)
  - APPLICATION SITE BLEEDING [None]
  - APPLICATION SITE ERYTHEMA [None]
  - APPLICATION SITE PAIN [None]
  - DIZZINESS [None]
  - DYSGEUSIA [None]
  - DYSPNOEA [None]
